FAERS Safety Report 4521680-6 (Version None)
Quarter: 2004Q4

REPORT INFORMATION
  Report Type: 
  Country: None (occurrence: None)
  Receive Date: 20041206
  Receipt Date: 20041118
  Transmission Date: 20050328
  Serious: Yes (Death, Hospitalization)
  Sender: FDA-Public Use
  Company Number: L04-USA-07403-48

PATIENT
  Age: 45 Year
  Sex: Male

DRUGS (3)
  1. DILTIAZEM [Suspect]
  2. AMITRIPTYLINE [Suspect]
  3. ACTIVATED CHARCOAL (CHARCOAL, ACTIVATED) [Suspect]

REACTIONS (10)
  - ASPIRATION [None]
  - BLOOD PRESSURE DECREASED [None]
  - COMA [None]
  - COMPLETED SUICIDE [None]
  - CONVULSION [None]
  - ELECTROCARDIOGRAM QRS COMPLEX PROLONGED [None]
  - ELECTROMECHANICAL DISSOCIATION [None]
  - HEART RATE DECREASED [None]
  - MULTIPLE DRUG OVERDOSE [None]
  - VOMITING [None]
